FAERS Safety Report 15555557 (Version 1)
Quarter: 2018Q4

REPORT INFORMATION
  Report Type: Other
  Country: GB (occurrence: GB)
  Receive Date: 20181026
  Receipt Date: 20181026
  Transmission Date: 20190205
  Serious: Yes (Hospitalization)
  Sender: FDA-Public Use
  Company Number: GB-COVIS PHARMA B.V.-2018COV03813

PATIENT
  Age: 98 Year
  Sex: Female

DRUGS (14)
  1. METFORMIN [Concomitant]
     Active Substance: METFORMIN HYDROCHLORIDE
     Dosage: 850 MG
  2. ADCALD3 (CALCIUM CARBONATE, COLECALCIFEROL) [Concomitant]
  3. CLOTRIMAZOLE. [Concomitant]
     Active Substance: CLOTRIMAZOLE
     Dosage: UNK
     Dates: start: 20180914
  4. RAMIPRIL. [Suspect]
     Active Substance: RAMIPRIL
     Dosage: 5 MG, 1X/DAY
     Route: 048
     Dates: end: 20180920
  5. CARBOMER [Concomitant]
     Active Substance: CARBOMER
     Dosage: 980 UNK
  6. PRILOSEC [Suspect]
     Active Substance: OMEPRAZOLE MAGNESIUM
     Dosage: 20 MG, 1X/DAY
     Route: 048
     Dates: end: 20180920
  7. CITALOPRAM [Suspect]
     Active Substance: CITALOPRAM HYDROBROMIDE
     Dosage: 10 MG, 1X/DAY
     Route: 048
     Dates: end: 20180920
  8. ACETYLSALICYLIC ACID [Suspect]
     Active Substance: ASPIRIN
     Dosage: 75 MG, 1X/DAY
     Route: 048
     Dates: end: 20180920
  9. ANASTROZOLE. [Concomitant]
     Active Substance: ANASTROZOLE
     Dosage: 1 MG
  10. FERROUS FUMARATE [Concomitant]
     Active Substance: FERROUS FUMARATE
     Dosage: 322 MG, 1X/DAY
     Route: 048
     Dates: end: 20180926
  11. BISOPROLOL [Concomitant]
     Active Substance: BISOPROLOL
  12. NITRAZEPAM [Suspect]
     Active Substance: NITRAZEPAM
     Dosage: 5 MG, 1X/DAY
     Route: 048
     Dates: end: 20180920
  13. PARACETAMOL [Concomitant]
     Active Substance: ACETAMINOPHEN
     Dosage: 500 MG
  14. ADALAT [Concomitant]
     Active Substance: NIFEDIPINE
     Dosage: 10 MG

REACTIONS (5)
  - Contusion [Unknown]
  - Confusional state [Unknown]
  - Fall [Recovered/Resolved with Sequelae]
  - Hyponatraemia [Recovering/Resolving]
  - Subarachnoid haemorrhage [Recovering/Resolving]

NARRATIVE: CASE EVENT DATE: 20180920
